FAERS Safety Report 5284595-4 (Version None)
Quarter: 2007Q1

REPORT INFORMATION
  Report Type: 
  Country: None (occurrence: None)
  Receive Date: 20061215
  Receipt Date: 20060602
  Transmission Date: 20070707
  Serious: Yes (Other)
  Sender: FDA-Public Use
  Company Number: HQWYE949105JUN06

PATIENT
  Age: 46 Year
  Sex: Female
  Weight: 81.72 kg

DRUGS (3)
  1. EFFEXOR XR [Suspect]
     Indication: MAJOR DEPRESSION
     Dosage: ^262.5 MG^ (OVERDOSE AMOUNT), ORAL
     Route: 048
     Dates: start: 20060417, end: 20060417
  2. SEROQUEL [Suspect]
     Indication: BIPOLAR DISORDER
     Dosage: ^4X THE PRESCRIBED DOSE^ (OVERDOSE AMOUNT)
     Dates: start: 20060417, end: 20060417
  3. SEROQUEL [Suspect]
     Indication: MAJOR DEPRESSION
     Dosage: ^4X THE PRESCRIBED DOSE^ (OVERDOSE AMOUNT)
     Dates: start: 20060417, end: 20060417

REACTIONS (2)
  - INTENTIONAL OVERDOSE [None]
  - SUICIDE ATTEMPT [None]
